FAERS Safety Report 16577897 (Version 2)
Quarter: 2019Q4

REPORT INFORMATION
  Report Type: Spontaneous
  Country: US (occurrence: US)
  Receive Date: 20190716
  Receipt Date: 20191002
  Transmission Date: 20200122
  Serious: No
  Sender: FDA-Public Use
  Company Number: US-PFIZER INC-2019298917

PATIENT
  Age: 55 Year
  Sex: Male
  Weight: 77 kg

DRUGS (3)
  1. LYRICA [Suspect]
     Active Substance: PREGABALIN
     Indication: NEUROPATHY PERIPHERAL
     Dosage: 75 MG, DAILY
     Route: 048
  2. LYRICA [Suspect]
     Active Substance: PREGABALIN
     Dosage: 150 MG, 2X/DAY (150 IN THE MORNING AND 150 IN THE EVENING)
     Route: 048
     Dates: start: 201903
  3. LYRICA [Suspect]
     Active Substance: PREGABALIN
     Dosage: 150 MG, DAILY
     Route: 048

REACTIONS (5)
  - Intentional product use issue [Unknown]
  - Motor dysfunction [Unknown]
  - Product dose omission [Unknown]
  - Condition aggravated [Unknown]
  - Neuralgia [Unknown]
